FAERS Safety Report 18032245 (Version 2)
Quarter: 2020Q3

REPORT INFORMATION
  Report Type: Spontaneous
  Country: JP (occurrence: JP)
  Receive Date: 20200716
  Receipt Date: 20200807
  Transmission Date: 20201103
  Serious: Yes (Hospitalization)
  Sender: FDA-Public Use
  Company Number: JP-JNJFOC-20200721423

PATIENT
  Sex: Female

DRUGS (9)
  1. CLARITIN [Concomitant]
     Active Substance: LORATADINE
     Dosage: 10 MILLIGRAM, QD
     Route: 064
     Dates: end: 20190911
  2. REMICADE [Suspect]
     Active Substance: INFLIXIMAB
     Indication: PRODUCT USED FOR UNKNOWN INDICATION
     Dosage: 470 MILLIGRAM, QD
     Route: 064
     Dates: start: 20100410
  3. FAMOTIDINE. [Concomitant]
     Active Substance: FAMOTIDINE
     Dosage: 5 MILLIGRAM, QD
     Route: 064
     Dates: end: 20190911
  4. REMICADE [Suspect]
     Active Substance: INFLIXIMAB
     Dosage: 470 MILLIGRAM, QD
     Route: 064
  5. REMICADE [Suspect]
     Active Substance: INFLIXIMAB
     Dosage: 470 MILLIGRAM, QD
     Route: 064
     Dates: start: 20190717, end: 20190717
  6. REMICADE [Suspect]
     Active Substance: INFLIXIMAB
     Dosage: 470 MILLIGRAM, QD
     Route: 064
     Dates: start: 20190116, end: 20190116
  7. ONON [Concomitant]
     Active Substance: PRANLUKAST
     Dosage: 112.5 MILLIGRAM, BID
     Route: 064
     Dates: end: 20190911
  8. ALESION [Concomitant]
     Active Substance: EPINASTINE HYDROCHLORIDE
     Dosage: 20 MILLIGRAM, QD
     Route: 064
     Dates: end: 20190911
  9. PREDONINE [Concomitant]
     Active Substance: PREDNISOLONE
     Dosage: 5 MILLIGRAM, QD
     Route: 064
     Dates: end: 20190911

REACTIONS (2)
  - Heart sounds abnormal [Recovered/Resolved]
  - Foetal exposure during pregnancy [Unknown]

NARRATIVE: CASE EVENT DATE: 20190919
